FAERS Safety Report 15112645 (Version 6)
Quarter: 2018Q3

REPORT INFORMATION
  Report Type: Report from Study
  Country: None (occurrence: DE)
  Receive Date: 20180705
  Receipt Date: 20180827
  Transmission Date: 20181010
  Serious: Yes (Congenital Anomaly, Other)
  Sender: FDA-Public Use
  Company Number: DE-BAUSCH-BL-2018-018618

PATIENT
  Age: 1 Day
  Sex: Male
  Weight: 3.37 kg

DRUGS (8)
  1. LEVOTHYROXINE SODIUM. [Suspect]
     Active Substance: LEVOTHYROXINE SODIUM
     Indication: PRODUCT USED FOR UNKNOWN INDICATION
     Dosage: THERAPY DURATION: 8 MONTHS 5 DAYS
     Route: 064
     Dates: start: 20130310, end: 20131113
  2. SITAGLIPTIN PHOSPHATE [Suspect]
     Active Substance: SITAGLIPTIN PHOSPHATE
     Indication: MATERNAL EXPOSURE TIMING UNSPECIFIED
     Dosage: THERAPY DURATION: 1 MONTH 16 DAYS 12 HRS
     Route: 064
     Dates: start: 20130310, end: 20130425
  3. INSULIN [Concomitant]
     Active Substance: INSULIN NOS
     Indication: PRODUCT USED FOR UNKNOWN INDICATION
     Route: 064
  4. FOLIC ACID. [Concomitant]
     Active Substance: FOLIC ACID
     Indication: PRODUCT USED FOR UNKNOWN INDICATION
     Route: 065
  5. METOPROLOL SALT NOT SPECIFIED [Suspect]
     Active Substance: METOPROLOL
     Indication: HYPERTENSION
     Dosage: THERAPY DURATION: 6 MONTHS 13 DAYS
     Route: 064
     Dates: start: 20130502, end: 20131113
  6. METFORMIN HYDROCHLORIDE. [Suspect]
     Active Substance: METFORMIN HYDROCHLORIDE
     Indication: PRODUCT USED FOR UNKNOWN INDICATION
     Dosage: THERAPY DURATION; 1 MONTH 16 DAYS 12 HRS
     Route: 064
     Dates: start: 20130310, end: 20130425
  7. RAMIPRIL. [Suspect]
     Active Substance: RAMIPRIL
     Indication: HYPERTENSION
     Dosage: THERAPY DURATION: 1 MONTH 16 DAYS
     Route: 064
     Dates: start: 20130310, end: 20130425
  8. METHYLDOPA. [Suspect]
     Active Substance: METHYLDOPA
     Indication: PRODUCT USED FOR UNKNOWN INDICATION
     Dosage: THERAPY DURATION: 6 MONTHS 13 DAYS
     Route: 064
     Dates: start: 20130502, end: 20131113

REACTIONS (5)
  - Premature baby [Unknown]
  - Diabetic foetopathy [Unknown]
  - Large for dates baby [Recovering/Resolving]
  - Atrial septal defect [Unknown]
  - Foetal exposure during pregnancy [Unknown]
